FAERS Safety Report 13853011 (Version 1)
Quarter: 2017Q3

REPORT INFORMATION
  Report Type: Spontaneous
  Country: US (occurrence: US)
  Receive Date: 20170809
  Receipt Date: 20170809
  Transmission Date: 20171127
  Serious: No
  Sender: FDA-Public Use
  Company Number: US-ROCHE-639317

PATIENT
  Age: 50 Year
  Sex: Female

DRUGS (4)
  1. AMBIEN [Concomitant]
     Active Substance: ZOLPIDEM TARTRATE
     Dosage: FREQUENCY: PRN (AS REQUIRED)
     Route: 065
  2. BONIVA [Suspect]
     Active Substance: IBANDRONATE SODIUM
     Indication: PRODUCT USED FOR UNKNOWN INDICATION
     Route: 048
     Dates: start: 20090510, end: 20090611
  3. ALLI [Concomitant]
     Active Substance: ORLISTAT
     Dosage: DRUG NAME REPORTED AS OTC ALLI
     Route: 065
  4. ESTROGEN [Concomitant]
     Active Substance: ESTROGENS
     Dosage: FREQUENCY REPORTED AS BIW (BI WEEKLY)
     Route: 065

REACTIONS (2)
  - Headache [Recovered/Resolved]
  - Dizziness [Recovered/Resolved]

NARRATIVE: CASE EVENT DATE: 20090510
